FAERS Safety Report 6822730-4 (Version None)
Quarter: 2010Q3

REPORT INFORMATION
  Report Type: 
  Country: None (occurrence: None)
  Receive Date: 20100708
  Receipt Date: 20100628
  Transmission Date: 20110219
  Serious: Yes (Other)
  Sender: FDA-Public Use
  Company Number: BR-PFIZER INC-2010080801

PATIENT
  Age: 46 Year
  Sex: Male
  Weight: 80 kg

DRUGS (3)
  1. CHAMPIX [Suspect]
     Indication: SMOKING CESSATION THERAPY
     Dosage: UNK
     Route: 048
     Dates: start: 20100614, end: 20100601
  2. CHAMPIX [Suspect]
     Dosage: 1 MG, 2X/DAY
     Route: 048
     Dates: start: 20100601
  3. DIAZEPAM [Concomitant]
     Indication: RELAXATION THERAPY
     Dosage: UNK
     Dates: start: 19980101

REACTIONS (3)
  - DEPRESSION [None]
  - IRRITABILITY [None]
  - MEMORY IMPAIRMENT [None]
